FAERS Safety Report 19634944 (Version 1)
Quarter: 2021Q3

REPORT INFORMATION
  Report Type: Spontaneous
  Country: US (occurrence: US)
  Receive Date: 20210730
  Receipt Date: 20210730
  Transmission Date: 20211014
  Serious: No
  Sender: FDA-Public Use
  Company Number: None

PATIENT
  Age: 60 Year
  Sex: Female
  Weight: 95 kg

DRUGS (1)
  1. LIDOCAINE PATCH 5% [Suspect]
     Active Substance: LIDOCAINE
     Dosage: ?          OTHER DOSE:700/1 MG;?
     Route: 061
     Dates: start: 20210726

REACTIONS (3)
  - Product substitution issue [None]
  - Hypotension [None]
  - Anaphylactic reaction [None]
